FAERS Safety Report 4806132-8 (Version None)
Quarter: 2005Q4

REPORT INFORMATION
  Report Type: 
  Country: None (occurrence: None)
  Receive Date: 20051019
  Receipt Date: 20051019
  Transmission Date: 20060501
  Serious: Yes (Hospitalization)
  Sender: FDA-Public Use
  Company Number: None

PATIENT
  Age: 65 Year
  Sex: Male
  Weight: 120.2032 kg

DRUGS (10)
  1. RISPERIDONE [Suspect]
     Indication: MENTAL STATUS CHANGES
     Dosage: 1MG BID BUCCAL
     Route: 002
     Dates: start: 20051007, end: 20051011
  2. AMITRIPTYLINE HCL [Concomitant]
  3. CITALOPRAM HYDROBROMIDE [Concomitant]
  4. FINASTERIDE [Concomitant]
  5. FUROSEMIDE [Concomitant]
  6. GEMFIBROZIL [Concomitant]
  7. HYDROXYZINE PAMOATE [Concomitant]
  8. NOVOLIN N [Concomitant]
  9. INSULIN HUMAN ASPART [Concomitant]
  10. INSULIN [Concomitant]

REACTIONS (1)
  - PLATELET COUNT DECREASED [None]
